FAERS Safety Report 13518330 (Version 1)
Quarter: 2017Q2

REPORT INFORMATION
  Report Type: Spontaneous
  Country: US (occurrence: US)
  Receive Date: 20170505
  Receipt Date: 20170505
  Transmission Date: 20170830
  Serious: Yes (Disabling)
  Sender: FDA-Public Use
  Company Number: None

PATIENT
  Age: 44 Year
  Sex: Female
  Weight: 69.75 kg

DRUGS (1)
  1. ENBREL [Suspect]
     Active Substance: ETANERCEPT
     Indication: RHEUMATOID ARTHRITIS
     Dosage: ?          OTHER FREQUENCY:1 X WEEK SHOT;OTHER ROUTE:INJECTION?
     Dates: end: 20101216

REACTIONS (12)
  - Nervous system disorder [None]
  - Disability [None]
  - Tic [None]
  - Amnesia [None]
  - Speech disorder [None]
  - Seizure [None]
  - Abasia [None]
  - Loss of personal independence in daily activities [None]
  - Tremor [None]
  - Visual impairment [None]
  - Sensory disturbance [None]
  - Pain [None]

NARRATIVE: CASE EVENT DATE: 20101216
